FAERS Safety Report 5921018-3 (Version None)
Quarter: 2008Q4

REPORT INFORMATION
  Report Type: 
  Country: None (occurrence: None)
  Receive Date: 20081016
  Receipt Date: 20081009
  Transmission Date: 20090506
  Serious: Yes (Other)
  Sender: FDA-Public Use
  Company Number: IT-PFIZER INC-2008085759

PATIENT
  Sex: Male

DRUGS (1)
  1. VIAGRA [Suspect]
     Indication: PROSTATECTOMY
     Route: 048
     Dates: start: 20080507

REACTIONS (4)
  - FEELING HOT [None]
  - HYPERTENSION [None]
  - RASH [None]
  - SKIN BURNING SENSATION [None]
